FAERS Safety Report 7831975-6 (Version None)
Quarter: 2011Q4

REPORT INFORMATION
  Report Type: 
  Country: None (occurrence: None)
  Receive Date: 20111021
  Receipt Date: 20111013
  Transmission Date: 20120403
  Serious: Yes (Death)
  Sender: FDA-Public Use
  Company Number: GB-ROCHE-GNE324624

PATIENT
  Sex: Male

DRUGS (8)
  1. FOLIC ACID [Concomitant]
  2. CITALOPRAM HYDROBROMIDE [Concomitant]
  3. TINZAPARIN [Concomitant]
  4. ACETAMINOPHEN [Concomitant]
  5. SENNA [Concomitant]
  6. LUCENTIS [Suspect]
     Indication: MACULAR DEGENERATION
     Route: 050
     Dates: start: 20090501
  7. AUGMENTIN [Concomitant]
  8. CLOPIDOGREL [Concomitant]

REACTIONS (3)
  - HYPERTENSION [None]
  - RESPIRATORY TRACT INFECTION [None]
  - SEPSIS [None]
